FAERS Safety Report 17697511 (Version 2)
Quarter: 2020Q2

REPORT INFORMATION
  Report Type: Spontaneous
  Country: AT (occurrence: AT)
  Receive Date: 20200423
  Receipt Date: 20200529
  Transmission Date: 20200714
  Serious: No
  Sender: FDA-Public Use
  Company Number: AT-ROCHE-2585941

PATIENT
  Age: 75 Year
  Sex: Male
  Weight: 110 kg

DRUGS (4)
  1. ROACTEMRA [Suspect]
     Active Substance: TOCILIZUMAB
     Indication: COVID-19
     Route: 065
  2. XARELTO [Concomitant]
     Active Substance: RIVAROXABAN
     Indication: DEEP VEIN THROMBOSIS
  3. ARTERENOL [Concomitant]
     Active Substance: NOREPINEPHRINE HYDROCHLORIDE, (+/-)-
  4. SUPRARENIN [EPINEPHRINE] [Concomitant]

REACTIONS (2)
  - Off label use [Unknown]
  - Product use in unapproved indication [Unknown]
